FAERS Safety Report 4783589-2 (Version None)
Quarter: 2005Q3

REPORT INFORMATION
  Report Type: 
  Country: None (occurrence: None)
  Receive Date: 20050929
  Receipt Date: 20050830
  Transmission Date: 20060218
  Serious: Yes (Other)
  Sender: FDA-Public Use
  Company Number: PHNU2005DE03044

PATIENT
  Sex: Male
  Weight: 96 kg

DRUGS (3)
  1. MYFORTIC [Suspect]
     Indication: LIVER TRANSPLANT
     Dosage: UNK, UNK
     Route: 048
     Dates: start: 20020101
  2. SANDIMMUNE [Suspect]
     Indication: LIVER TRANSPLANT
     Dosage: 80 MG, BID
     Route: 048
     Dates: start: 20041202
  3. RAPAMUNE [Concomitant]

REACTIONS (3)
  - BLOOD CREATININE INCREASED [None]
  - NEPHROPATHY TOXIC [None]
  - RENAL DISORDER [None]
